FAERS Safety Report 22876205 (Version 3)
Quarter: 2023Q4

REPORT INFORMATION
  Report Type: Report from Study
  Country: US (occurrence: US)
  Receive Date: 20230829
  Receipt Date: 20231018
  Transmission Date: 20240110
  Serious: Yes (Other)
  Sender: FDA-Public Use
  Company Number: US-ABBVIE-5383132

PATIENT
  Sex: Male
  Weight: 77 kg

DRUGS (4)
  1. RINVOQ [Suspect]
     Active Substance: UPADACITINIB
     Indication: Colitis ulcerative
     Dosage: FORM STRENGTH WAS 30 MILLIGRAM.
     Route: 048
     Dates: start: 202304, end: 20230707
  2. RINVOQ [Suspect]
     Active Substance: UPADACITINIB
     Indication: Colitis ulcerative
     Dosage: FORM STRENGTH WAS 45 MILLIGRAM.
     Route: 048
     Dates: start: 20230222, end: 202304
  3. RINVOQ [Suspect]
     Active Substance: UPADACITINIB
     Indication: Colitis ulcerative
     Route: 048
  4. MESALAMINE [Concomitant]
     Active Substance: MESALAMINE
     Indication: Colitis ulcerative
     Dosage: MANY YEARS.

REACTIONS (7)
  - Blindness [Recovering/Resolving]
  - Photopsia [Recovering/Resolving]
  - Pruritus [Recovered/Resolved]
  - Vision blurred [Recovering/Resolving]
  - Rash [Recovered/Resolved]
  - Unevaluable event [Unknown]
  - Eye disorder [Unknown]

NARRATIVE: CASE EVENT DATE: 20230101
